FAERS Safety Report 14798773 (Version 1)
Quarter: 2018Q2

REPORT INFORMATION
  Report Type: Spontaneous
  Country: ES (occurrence: ES)
  Receive Date: 20180424
  Receipt Date: 20180424
  Transmission Date: 20180711
  Serious: Yes (Other)
  Sender: FDA-Public Use
  Company Number: ES-ELI_LILLY_AND_COMPANY-ES201802009035

PATIENT
  Age: 56 Year
  Sex: Female

DRUGS (5)
  1. RAMUCIRUMAB [Suspect]
     Active Substance: RAMUCIRUMAB
     Dosage: UNK UNK, CYCLICAL
     Route: 065
     Dates: start: 20180103
  2. PACLITAXEL. [Concomitant]
     Active Substance: PACLITAXEL
     Indication: GASTRIC CANCER STAGE IV
     Dosage: UNK, CYCLICAL
     Dates: start: 20171218
  3. RAMUCIRUMAB [Suspect]
     Active Substance: RAMUCIRUMAB
     Dosage: UNK UNK, CYCLICAL
     Route: 065
     Dates: start: 20180217
  4. RAMUCIRUMAB [Suspect]
     Active Substance: RAMUCIRUMAB
     Indication: GASTRIC CANCER STAGE IV
     Dosage: UNK UNK, CYCLICAL
     Route: 065
     Dates: start: 20171218
  5. RAMUCIRUMAB [Suspect]
     Active Substance: RAMUCIRUMAB
     Dosage: UNK UNK, CYCLICAL
     Route: 065
     Dates: start: 20180103

REACTIONS (2)
  - Intestinal perforation [Unknown]
  - Pneumoperitoneum [Unknown]
